FAERS Safety Report 5973641-8 (Version None)
Quarter: 2008Q4

REPORT INFORMATION
  Report Type: 
  Country: None (occurrence: None)
  Receive Date: 20081201
  Receipt Date: 20081120
  Transmission Date: 20090506
  Serious: Yes (Other)
  Sender: FDA-Public Use
  Company Number: GB-SANOFI-SYNTHELABO-A01200815179

PATIENT
  Age: 40 Year
  Sex: Female

DRUGS (3)
  1. IRBESARTAN [Concomitant]
     Indication: HYPERTENSION
     Dosage: 75 MG
     Route: 048
     Dates: start: 20080814
  2. HYDROXYCHLOROQUINE SULFATE [Suspect]
     Indication: SYSTEMIC LUPUS ERYTHEMATOSUS
     Route: 048
     Dates: start: 20080801, end: 20081003
  3. LEVOTHYROXINE SODIUM [Concomitant]
     Indication: HYPOTHYROIDISM
     Dosage: 25 MG
     Route: 048
     Dates: start: 20080911

REACTIONS (4)
  - BURNING SENSATION [None]
  - OROPHARYNGEAL PAIN [None]
  - PARAESTHESIA [None]
  - THINKING ABNORMAL [None]
